FAERS Safety Report 5232351-5 (Version None)
Quarter: 2007Q1

REPORT INFORMATION
  Report Type: 
  Country: None (occurrence: None)
  Receive Date: 20070207
  Receipt Date: 20070126
  Transmission Date: 20070707
  Serious: Yes (Other)
  Sender: FDA-Public Use
  Company Number: US-JNJFOC-20061001134

PATIENT
  Sex: Female
  Weight: 91.17 kg

DRUGS (7)
  1. TOPAMAX [Suspect]
     Dosage: 50-75 MG DOSE
     Route: 048
  2. TOPAMAX [Suspect]
     Indication: MIGRAINE PROPHYLAXIS
     Dosage: ^STARTER KIT^
     Route: 048
  3. ORTHO TRI-CYCLEN LO [Concomitant]
     Indication: CONTRACEPTION
  4. ASPIRIN [Concomitant]
     Indication: MIGRAINE
     Route: 048
  5. LIPITOR [Concomitant]
     Indication: HYPERLIPIDAEMIA
  6. NEURONTIN [Concomitant]
  7. FOLIC ACID [Concomitant]

REACTIONS (5)
  - GLAUCOMA [None]
  - HEADACHE [None]
  - LOSS OF CONSCIOUSNESS [None]
  - NAUSEA [None]
  - VISION BLURRED [None]
